FAERS Safety Report 13290469 (Version 1)
Quarter: 2017Q1

REPORT INFORMATION
  Report Type: Report from Study
  Country: CN (occurrence: CN)
  Receive Date: 20170303
  Receipt Date: 20170303
  Transmission Date: 20170428
  Serious: Yes (Other)
  Sender: FDA-Public Use
  Company Number: CN-ROCHE-1897393

PATIENT

DRUGS (7)
  1. OXALIPLATIN. [Suspect]
     Active Substance: OXALIPLATIN
     Indication: RECTAL CANCER
     Dosage: ON DAY 1
     Route: 065
  2. CAPECITABINE. [Suspect]
     Active Substance: CAPECITABINE
     Indication: RECTAL CANCER
     Dosage: ON DAYS 1-14 WERE GIVEN FOR 3 WEEK-CYCLE
     Route: 065
  3. OXALIPLATIN. [Suspect]
     Active Substance: OXALIPLATIN
     Dosage: ON DAY 1
     Route: 065
  4. 5-FU [Suspect]
     Active Substance: FLUOROURACIL
     Indication: RECTAL CANCER
     Dosage: ON DAY 1
     Route: 042
  5. CAPECITABINE. [Suspect]
     Active Substance: CAPECITABINE
     Dosage: TWICE DAILY DURING RADIOTHERAPY WITHOUT WEEKEND BREAKS
     Route: 065
  6. LEUCOVORIN. [Suspect]
     Active Substance: LEUCOVORIN
     Indication: RECTAL CANCER
     Dosage: ON DAY 1
     Route: 065
  7. 5-FU [Suspect]
     Active Substance: FLUOROURACIL
     Dosage: DAYS 1 AND 2 FOR 2 WEEK-CYCLE
     Route: 042

REACTIONS (12)
  - Radiation proctitis [Unknown]
  - Leukopenia [Unknown]
  - Micturition disorder [Unknown]
  - Palmar-plantar erythrodysaesthesia syndrome [Unknown]
  - Liver disorder [Unknown]
  - Nausea [Unknown]
  - Diarrhoea [Unknown]
  - Rash [Unknown]
  - Renal disorder [Unknown]
  - Neurotoxicity [Unknown]
  - Thrombocytopenia [Unknown]
  - Vomiting [Unknown]
